FAERS Safety Report 5150323-6 (Version None)
Quarter: 2006Q4

REPORT INFORMATION
  Report Type: 
  Country: None (occurrence: None)
  Receive Date: 20061114
  Receipt Date: 20061102
  Transmission Date: 20070319
  Serious: Yes (Hospitalization, Disabling)
  Sender: FDA-Public Use
  Company Number: PHHO2006KR18226

PATIENT
  Age: 60 Year
  Sex: Male
  Weight: 79 kg

DRUGS (3)
  1. ZOLEDRONIC ACID [Suspect]
     Indication: METASTASES TO BONE
     Dosage: 4MG EVERY 4WEEKS
     Route: 042
     Dates: start: 20060905, end: 20061002
  2. CALCIUM [Concomitant]
  3. VITAMIN D [Concomitant]

REACTIONS (6)
  - CONDITION AGGRAVATED [None]
  - FACE OEDEMA [None]
  - METASTASES TO BONE [None]
  - NEOPLASM MALIGNANT [None]
  - OSTEONECROSIS [None]
  - PAIN IN JAW [None]
